FAERS Safety Report 8069436-4 (Version None)
Quarter: 2011Q4

REPORT INFORMATION
  Report Type: 
  Country: None (occurrence: None)
  Receive Date: 20111221
  Receipt Date: 20111019
  Transmission Date: 20120403
  Serious: Yes (Death, Other)
  Sender: FDA-Public Use
  Company Number: PHEH2011US07283

PATIENT
  Age: 70 Year
  Sex: Female
  Weight: 52.5 kg

DRUGS (4)
  1. EXJADE [Suspect]
     Indication: NEOPLASM
     Dosage: 1000 MG, DAILY, ORAL
     Route: 048
     Dates: start: 20070730, end: 20100309
  2. DILAUDID (HYDROMORPHONE HYDROCHLORIDE) TABLET, 2 MG [Concomitant]
  3. AMBIEN [Concomitant]
  4. MORPHINE SULFATE (MORPHINE SULFATE) TABLET, 15 MG [Concomitant]

REACTIONS (3)
  - MYELOPROLIFERATIVE DISORDER [None]
  - NEOPLASM PROGRESSION [None]
  - NEOPLASM MALIGNANT [None]
